FAERS Safety Report 5078769-5 (Version None)
Quarter: 2006Q3

REPORT INFORMATION
  Report Type: 
  Country: None (occurrence: None)
  Receive Date: 20060809
  Receipt Date: 20060731
  Transmission Date: 20061208
  Serious: Yes (Other)
  Sender: FDA-Public Use
  Company Number: 2006-07-2056

PATIENT
  Age: 46 Year
  Sex: Female

DRUGS (1)
  1. PEG-INTRON [Suspect]

REACTIONS (1)
  - LYMPHADENOPATHY [None]
